FAERS Safety Report 9866437 (Version 1)
Quarter: 2014Q1

REPORT INFORMATION
  Report Type: Spontaneous
  Country: FR (occurrence: FR)
  Receive Date: 20140204
  Receipt Date: 20140204
  Transmission Date: 20141002
  Serious: Yes (Other)
  Sender: FDA-Public Use
  Company Number: FR-ROCHE-1342183

PATIENT
  Age: 73 Year
  Sex: Female

DRUGS (3)
  1. AVASTIN [Suspect]
     Indication: RENAL CANCER METASTATIC
     Route: 042
     Dates: start: 20131211
  2. ROFERON-A [Suspect]
     Indication: RENAL CANCER METASTATIC
     Dosage: 3X10^6 IU
     Route: 042
  3. AVLOCARDYL [Concomitant]
     Route: 048

REACTIONS (1)
  - Malaise [Unknown]
